FAERS Safety Report 10061629 (Version 2)
Quarter: 2014Q2

REPORT INFORMATION
  Report Type: Spontaneous
  Country: PL (occurrence: PL)
  Receive Date: 20140407
  Receipt Date: 20140407
  Transmission Date: 20141212
  Serious: Yes (Other)
  Sender: FDA-Public Use
  Company Number: PL-ROCHE-1374668

PATIENT
  Age: 57 Year
  Sex: Female
  Weight: 65 kg

DRUGS (6)
  1. ROACTEMRA [Suspect]
     Indication: RHEUMATOID ARTHRITIS
     Route: 042
     Dates: start: 20140129, end: 20140328
  2. VITRUM CALCIUM [Concomitant]
     Indication: OSTEOPOROSIS
     Dosage: 600 MG + D3
     Route: 048
  3. METYPRED [Concomitant]
     Indication: RHEUMATOID ARTHRITIS
     Dosage: 1 TABLET IN THE MORING
     Route: 048
     Dates: start: 2008
  4. BONVIVA [Concomitant]
     Indication: OSTEOPOROSIS
     Route: 048
  5. ENARENAL [Concomitant]
     Indication: HYPERTENSION
     Route: 048
  6. POLPRAZOL [Concomitant]
     Route: 048

REACTIONS (2)
  - Hypertension [Recovered/Resolved]
  - Vertigo [Recovered/Resolved]
